FAERS Safety Report 19216258 (Version 2)
Quarter: 2021Q4

REPORT INFORMATION
  Report Type: Report from Study
  Country: FR (occurrence: None)
  Receive Date: 20210505
  Receipt Date: 20211119
  Transmission Date: 20220303
  Serious: Yes (Hospitalization)
  Sender: FDA-Public Use
  Company Number: FR-ROCHE-2781883

PATIENT
  Age: 42 Year
  Sex: Female
  Weight: 95 kg

DRUGS (3)
  1. ATEZOLIZUMAB [Suspect]
     Active Substance: ATEZOLIZUMAB
     Indication: Cervix carcinoma
     Dosage: DATE OF LAST ADMINISTRATION PRIOR TO AE AND SAE  02/APR/2021?DATE OF LAST ADMINISTRATION 15/OCT/2021
     Route: 041
     Dates: start: 20201127
  2. BEVACIZUMAB [Suspect]
     Active Substance: BEVACIZUMAB
     Indication: Cervix carcinoma
     Dosage: 1125 MG?DATE OF LAST ADMINISTRATION PRIOR TO AE AND SAE 08/JAN/2021
     Route: 042
     Dates: start: 20201127, end: 20210108
  3. AMLODIPINE [Concomitant]
     Active Substance: AMLODIPINE BESYLATE
     Indication: Hypertension
     Route: 048
     Dates: start: 20201126

REACTIONS (2)
  - Pyelonephritis [Not Recovered/Not Resolved]
  - Haematuria [Recovered/Resolved]

NARRATIVE: CASE EVENT DATE: 20210226
